FAERS Safety Report 8790365 (Version 1)
Quarter: 2012Q4

REPORT INFORMATION
  Report Type: 
  Country: SE (occurrence: SE)
  Receive Date: 20120917
  Receipt Date: 20120917
  Transmission Date: 20130627
  Serious: Yes (Other)
  Sender: FDA-Public Use
  Company Number: SE-JNJFOC-20120902268

PATIENT
  Sex: Female

DRUGS (1)
  1. RISPERIDONE [Suspect]
     Indication: PRODUCT USED FOR UNKNOWN INDICATION
     Route: 030

REACTIONS (9)
  - Confusional state [Not Recovered/Not Resolved]
  - Depressed mood [Not Recovered/Not Resolved]
  - Depressed mood [Not Recovered/Not Resolved]
  - Feeling of despair [Not Recovered/Not Resolved]
  - Neuroleptic malignant syndrome [Not Recovered/Not Resolved]
  - Restlessness [Not Recovered/Not Resolved]
  - Eating disorder [Not Recovered/Not Resolved]
  - Fear [Not Recovered/Not Resolved]
  - Memory impairment [Not Recovered/Not Resolved]
